FAERS Safety Report 9110890 (Version 1)
Quarter: 2013Q1

REPORT INFORMATION
  Report Type: Spontaneous
  Country: US (occurrence: US)
  Receive Date: 20130219
  Receipt Date: 20130219
  Transmission Date: 20140127
  Serious: No
  Sender: FDA-Public Use
  Company Number: US-BRISTOL-MYERS SQUIBB COMPANY-16756629

PATIENT
  Age: 73 Year
  Sex: Female

DRUGS (18)
  1. ORENCIA [Suspect]
     Indication: RHEUMATOID ARTHRITIS
     Dosage: INFUSION, LAST DOSE: 24JUL12?EXP DAT:MAR2015
     Route: 042
     Dates: start: 20120709
  2. HYDROXYCHLOROQUINE SULFATE [Concomitant]
     Dosage: 1DF:2 TABS OF 200MG WITH FOOD OR MILK
  3. FLEXERIL [Concomitant]
     Dosage: 1DF:1 TABS OF 10 MG
  4. BUTALBITAL + CAFFEINE + ACETAMINOPHEN [Concomitant]
     Indication: HEADACHE
     Dosage: 1DF:1 TABLET OF 50-325-40MG
     Route: 048
  5. SYNTHROID [Concomitant]
     Dosage: 1DF:1 TABS OF 175MCG EVERY MORNONG ON EMPTY STOMACH
  6. EFFEXOR XR [Concomitant]
     Dosage: 1DF:1 CAPSULE OF 150MG EXTENDED RELEASE 24 HR
  7. HYDROCHLOROTHIAZIDE [Concomitant]
     Dosage: 1DF:1 TABLET OF 25MG
  8. FOLIC ACID [Concomitant]
     Dosage: 1DF:1 TABS OF 1MG
  9. OMEPRAZOLE [Concomitant]
     Dosage: 1DF:1 CAPSULE OF 20MG DELAYED RELEASE
  10. VITAMIN D [Concomitant]
     Dosage: 1DF:1 CAPSULE OF 2000 UNITS
  11. ASPIRIN [Concomitant]
     Dosage: 1DF:2-4 TABS OF 325MG DELAYED RELEASE
  12. ADVIL [Concomitant]
     Dosage: 1DF:1 TABS OF 200 MG
  13. FISH OIL [Concomitant]
     Dosage: 1DF:1 CAPSULE OF 300MG
  14. MULTIVITAMIN [Concomitant]
     Dosage: 1DF:1 TABLET
  15. CITRACAL + D [Concomitant]
     Dosage: 600 TABS AS DIRECTED
  16. MAXALT [Concomitant]
     Dosage: 1DF:10MG TABS AS DIRECTED
  17. AMITRIPTYLINE HCL [Concomitant]
     Dosage: 1DF:1 TABLET OF 25MG AT BEDTIME
  18. OXYBUTYNIN CHLORIDE [Concomitant]
     Dosage: 1DF:5 MG TABS AS DIRECTED

REACTIONS (2)
  - Headache [Recovering/Resolving]
  - Migraine [Unknown]
